FAERS Safety Report 8788880 (Version 1)
Quarter: 2012Q4

REPORT INFORMATION
  Report Type: 
  Country: US (occurrence: US)
  Receive Date: 20120915
  Receipt Date: 20120915
  Transmission Date: 20130627
  Serious: No
  Sender: FDA-Public Use
  Company Number: US-009507513-1209USA003971

PATIENT

DRUGS (4)
  1. SINGULAIR [Suspect]
     Indication: HYPERSENSITIVITY
     Dosage: Full tablet
     Route: 048
     Dates: start: 201202
  2. SINGULAIR [Suspect]
     Dosage: Quarter tablet
     Route: 048
  3. SINGULAIR [Suspect]
     Dosage: Half tablet
     Route: 048
  4. SINGULAIR [Suspect]
     Dosage: Full tablet
     Route: 048

REACTIONS (3)
  - Abdominal discomfort [Not Recovered/Not Resolved]
  - Dizziness [Not Recovered/Not Resolved]
  - Dizziness [Not Recovered/Not Resolved]
